FAERS Safety Report 18133905 (Version 1)
Quarter: 2020Q3

REPORT INFORMATION
  Report Type: Report from Study
  Country: TR (occurrence: TR)
  Receive Date: 20200811
  Receipt Date: 20200811
  Transmission Date: 20201103
  Serious: Yes (Hospitalization, Other)
  Sender: FDA-Public Use
  Company Number: TR-ACCORD-194700

PATIENT

DRUGS (3)
  1. FAVIPIRAVIR [Suspect]
     Active Substance: FAVIPIRAVIR
     Indication: COVID-19
  2. HYDROXYCHLOROQUINE [Suspect]
     Active Substance: HYDROXYCHLOROQUINE
     Indication: COVID-19
  3. AZITHROMYCIN ANHYDROUS. [Suspect]
     Active Substance: AZITHROMYCIN ANHYDROUS
     Indication: COVID-19

REACTIONS (1)
  - Ventricular tachycardia [Unknown]
